FAERS Safety Report 8775997 (Version 5)
Quarter: 2013Q4

REPORT INFORMATION
  Report Type: Spontaneous
  Country: US (occurrence: US)
  Receive Date: 20120910
  Receipt Date: 20131104
  Transmission Date: 20140711
  Serious: Yes (Hospitalization, Other)
  Sender: FDA-Public Use
  Company Number: US-009507513-1209USA001494

PATIENT
  Sex: Female
  Weight: 54.42 kg

DRUGS (4)
  1. NUVARING [Suspect]
     Indication: CONTRACEPTION
     Dosage: UNK
     Dates: start: 20080904, end: 20080911
  2. YAZ [Concomitant]
     Dosage: UNK, QD
     Dates: start: 200803, end: 20080904
  3. IBUPROFEN [Concomitant]
     Dosage: UNK
     Dates: start: 200803, end: 200809
  4. CALCIUM (UNSPECIFIED) [Concomitant]

REACTIONS (21)
  - Road traffic accident [Unknown]
  - Cerebrovascular accident [Recovered/Resolved]
  - Pain in extremity [Unknown]
  - Confusional state [Unknown]
  - Tinnitus [Unknown]
  - Adverse drug reaction [Unknown]
  - Headache [Unknown]
  - Endometrial ablation [Unknown]
  - Anxiety [Unknown]
  - Depression [Unknown]
  - Trichotillomania [Unknown]
  - Coordination abnormal [Unknown]
  - Local swelling [Unknown]
  - Migraine [Unknown]
  - Acne [Unknown]
  - Embolic stroke [Unknown]
  - Fatigue [Unknown]
  - Attention deficit/hyperactivity disorder [Unknown]
  - Anxiety [Unknown]
  - Menorrhagia [Unknown]
  - Transient ischaemic attack [Unknown]
